FAERS Safety Report 17406465 (Version 1)
Quarter: 2020Q1

REPORT INFORMATION
  Report Type: Spontaneous
  Country: US (occurrence: US)
  Receive Date: 20200211
  Receipt Date: 20200211
  Transmission Date: 20200409
  Serious: Yes (Disabling, Other)
  Sender: FDA-Public Use
  Company Number: None

PATIENT
  Age: 36 Year
  Sex: Female
  Weight: 67.5 kg

DRUGS (2)
  1. LEVOFLOXACIN 500 MG TABLET, [Suspect]
     Active Substance: LEVOFLOXACIN
     Indication: ENDOMETRITIS
     Dosage: ?          QUANTITY:14 TABLET(S);?
     Route: 048
     Dates: start: 20181106, end: 20181109
  2. METRONIDAZOLE 500 MG TABLET [Suspect]
     Active Substance: METRONIDAZOLE
     Indication: ENDOMETRITIS
     Dosage: ?          QUANTITY:28 TABLET(S);?
     Route: 048
     Dates: start: 20181106, end: 20181109

REACTIONS (10)
  - Hypoaesthesia [None]
  - Nervous system disorder [None]
  - Burning sensation [None]
  - Paraesthesia [None]
  - Arrhythmia [None]
  - Tremor [None]
  - Feeling abnormal [None]
  - Tendonitis [None]
  - Neuropathy peripheral [None]
  - Muscle twitching [None]

NARRATIVE: CASE EVENT DATE: 20181108
